FAERS Safety Report 25956560 (Version 1)
Quarter: 2025Q4

REPORT INFORMATION
  Report Type: Spontaneous
  Country: US (occurrence: None)
  Receive Date: 20251023
  Receipt Date: 20251023
  Transmission Date: 20260118
  Serious: Yes (Life-Threatening, Hospitalization, Other)
  Sender: FDA-CTU
  Company Number: None

PATIENT
  Age: 21 Year
  Sex: Male
  Weight: 69.75 kg

DRUGS (1)
  1. ENBREL [Suspect]
     Active Substance: ETANERCEPT
     Indication: Ankylosing spondylitis
     Dates: start: 20250406, end: 20250407

REACTIONS (5)
  - Mental disorder [None]
  - Road traffic accident [None]
  - Paranoia [None]
  - Mental status changes [None]
  - Imprisonment [None]

NARRATIVE: CASE EVENT DATE: 20250410
